FAERS Safety Report 4785994-7 (Version None)
Quarter: 2005Q3

REPORT INFORMATION
  Report Type: 
  Country: None (occurrence: None)
  Receive Date: 20050930
  Receipt Date: 20050930
  Transmission Date: 20060218
  Serious: Yes (Life-Threatening)
  Sender: FDA-Public Use
  Company Number: None

PATIENT
  Age: 23 Year
  Sex: Female
  Weight: 106.5953 kg

DRUGS (3)
  1. ZYPREXA [Suspect]
     Indication: SCHIZOPHRENIA
     Dosage: 5MG 2X A DAY PO
     Route: 048
     Dates: start: 20011207, end: 20050224
  2. METFORMIN [Concomitant]
  3. SYNTHROID [Concomitant]

REACTIONS (5)
  - DIABETES MELLITUS [None]
  - HYPOTHYROIDISM [None]
  - INTENTIONAL MISUSE [None]
  - SUICIDE ATTEMPT [None]
  - WEIGHT INCREASED [None]
